FAERS Safety Report 8044792-1 (Version None)
Quarter: 2012Q1

REPORT INFORMATION
  Report Type: 
  Country: None (occurrence: None)
  Receive Date: 20120113
  Receipt Date: 20120109
  Transmission Date: 20120608
  Serious: Yes (Life-Threatening, Hospitalization, Other)
  Sender: FDA-Public Use
  Company Number: FR-PFIZER INC-2005088603

PATIENT
  Age: 56 Year
  Sex: Male
  Weight: 55 kg

DRUGS (9)
  1. ROXITHROMYCIN [Suspect]
     Indication: LUNG DISORDER
     Route: 048
     Dates: start: 20050611, end: 20050614
  2. AMOXICILLIN TRIHYDRATE [Concomitant]
     Indication: ILL-DEFINED DISORDER
     Route: 042
     Dates: start: 20050608
  3. VFEND [Suspect]
     Indication: ASPERGILLOSIS
     Route: 048
     Dates: start: 20050609, end: 20050614
  4. CORDARONE [Suspect]
     Indication: ATRIAL FLUTTER
  5. DIGOXIN [Suspect]
     Indication: ATRIAL FLUTTER
  6. TIMOLOL MALEATE [Suspect]
     Indication: GLAUCOMA
     Route: 047
  7. DIGOXIN [Suspect]
     Indication: ATRIAL FIBRILLATION
     Dosage: 0.3 MG, 1X/DAY
     Route: 048
     Dates: start: 20050608, end: 20050614
  8. CORDARONE [Suspect]
     Indication: ATRIAL FIBRILLATION
     Dosage: 400 MG, 1X/DAY
     Route: 048
     Dates: start: 20050608, end: 20050614
  9. LEVOTHYROXINE SODIUM [Concomitant]
     Indication: HYPOTHYROIDISM
     Route: 048
     Dates: start: 20050608

REACTIONS (4)
  - ELECTROCARDIOGRAM QT PROLONGED [None]
  - HYPOKALAEMIA [None]
  - BRADYCARDIA [None]
  - TORSADE DE POINTES [None]
